FAERS Safety Report 14676921 (Version 9)
Quarter: 2025Q1

REPORT INFORMATION
  Report Type: Report from Study
  Country: DE (occurrence: DE)
  Receive Date: 20180324
  Receipt Date: 20250328
  Transmission Date: 20250409
  Serious: Yes (Hospitalization, Other)
  Sender: TORRENT PHARMA INC.
  Company Number: None

PATIENT
  Age: 75 Year
  Sex: Male
  Weight: 81 kg

DRUGS (12)
  1. QUETIAPINE [Suspect]
     Active Substance: QUETIAPINE
     Indication: Product used for unknown indication
     Dosage: 25 MG, QD
     Route: 065
  2. TOCILIZUMAB [Suspect]
     Active Substance: TOCILIZUMAB
     Indication: Vasculitis
     Route: 058
     Dates: start: 20140601, end: 20150601
  3. ENOXAPARIN SODIUM [Suspect]
     Active Substance: ENOXAPARIN SODIUM
     Indication: Venous thrombosis limb
     Route: 065
     Dates: start: 20150701
  4. CHOLECALCIFEROL [Suspect]
     Active Substance: CHOLECALCIFEROL
     Indication: Osteoporosis
     Route: 048
     Dates: start: 201204
  5. NADROPARIN CALCIUM [Suspect]
     Active Substance: NADROPARIN CALCIUM
     Indication: Venous thrombosis limb
     Route: 065
     Dates: start: 201507
  6. NADROPARIN [Suspect]
     Active Substance: NADROPARIN
     Indication: Venous thrombosis limb
  7. PROLIA [Suspect]
     Active Substance: DENOSUMAB
     Indication: Osteoporosis
     Dosage: 60 MG, QMO
     Route: 058
     Dates: start: 201405
  8. AMLODIPINE [Concomitant]
     Active Substance: AMLODIPINE BESYLATE
     Indication: Product used for unknown indication
  9. CORTISONE [Concomitant]
     Active Substance: CORTISONE
     Indication: Product used for unknown indication
     Route: 065
  10. ESCITALOPRAM [Concomitant]
     Active Substance: ESCITALOPRAM OXALATE
     Indication: Product used for unknown indication
     Route: 048
     Dates: start: 201507
  11. LISINOPRIL [Concomitant]
     Active Substance: LISINOPRIL
     Indication: Product used for unknown indication
     Route: 065
  12. PANTOPRAZOLE [Concomitant]
     Active Substance: PANTOPRAZOLE
     Indication: Product used for unknown indication
     Route: 065

REACTIONS (29)
  - Sleep disorder [Unknown]
  - Suture rupture [Recovered/Resolved]
  - Prostate cancer [Recovered/Resolved]
  - Soft tissue disorder [Recovered/Resolved]
  - Depression [Not Recovered/Not Resolved]
  - Lymphocele [Recovered/Resolved]
  - Erysipelas [Recovering/Resolving]
  - Venous thrombosis limb [Not Recovered/Not Resolved]
  - Fall [Unknown]
  - Off label use [Unknown]
  - Sepsis [Recovering/Resolving]
  - Rash erythematous [Unknown]
  - Lymphoedema [Recovered/Resolved]
  - Product use in unapproved indication [Unknown]
  - Sensitive skin [Unknown]
  - Inappropriate schedule of product administration [Unknown]
  - Platelet count decreased [Unknown]
  - Dysuria [Unknown]
  - Autoimmune disorder [Unknown]
  - Impaired healing [Recovered/Resolved]
  - Impaired healing [Recovered/Resolved]
  - Prostate cancer [Recovered/Resolved]
  - Leukopenia [Recovered/Resolved]
  - Eye inflammation [Recovering/Resolving]
  - Bronchitis [Recovered/Resolved]
  - Angioedema [Recovered/Resolved]
  - Wound dehiscence [Recovered/Resolved]
  - Acetabulum fracture [Recovering/Resolving]
  - C-reactive protein increased [Recovering/Resolving]

NARRATIVE: CASE EVENT DATE: 20140701
